FAERS Safety Report 5062072-3 (Version None)
Quarter: 2006Q3

REPORT INFORMATION
  Report Type: 
  Country: None (occurrence: None)
  Receive Date: 20060703
  Receipt Date: 20050930
  Transmission Date: 20061208
  Serious: No
  Sender: FDA-Public Use
  Company Number: 2005S1009849

PATIENT
  Age: 77 Year
  Sex: Female
  Weight: 60.782 kg

DRUGS (6)
  1. CLOZAPINE [Suspect]
     Indication: SCHIZOPHRENIA
     Dosage: 50 MG;BID;PO
     Route: 048
     Dates: start: 20010801
  2. FENTANYL [Concomitant]
  3. RISEDRONATE SODIUM [Concomitant]
  4. GABAPENTIN [Concomitant]
  5. CALCIUM CARBONATE [Concomitant]
  6. FLUOXETINE [Concomitant]

REACTIONS (1)
  - GRANULOCYTOPENIA [None]
